FAERS Safety Report 8002834-3 (Version None)
Quarter: 2011Q4

REPORT INFORMATION
  Report Type: 
  Country: None (occurrence: None)
  Receive Date: 20111222
  Receipt Date: 20101119
  Transmission Date: 20120403
  Serious: No
  Sender: FDA-Public Use
  Company Number: US-GLAXOSMITHKLINE-A0894272A

PATIENT
  Age: 74 Year
  Sex: Male

DRUGS (15)
  1. LANTUS [Concomitant]
  2. ATIVAN [Concomitant]
  3. HUMALOG [Concomitant]
  4. AVODART [Suspect]
     Indication: BENIGN PROSTATIC HYPERPLASIA
     Dosage: 1CAP PER DAY
     Route: 048
     Dates: end: 20100429
  5. FLOMAX [Concomitant]
  6. MIRAPEX [Concomitant]
  7. OXYCODONE HCL [Concomitant]
  8. ZEMPLAR [Concomitant]
  9. AMITRIPTYLINE HCL [Concomitant]
  10. ZOLPIDEM [Concomitant]
  11. POTASSIUM [Concomitant]
  12. ZETIA [Concomitant]
  13. BUMETANIDE [Concomitant]
  14. VITAMIN D [Concomitant]
  15. LEXAPRO [Concomitant]

REACTIONS (1)
  - BREAST TENDERNESS [None]
